FAERS Safety Report 10687572 (Version 2)
Quarter: 2015Q1

REPORT INFORMATION
  Report Type: Spontaneous
  Country: IN (occurrence: IN)
  Receive Date: 20150102
  Receipt Date: 20150102
  Transmission Date: 20150720
  Serious: Yes (Other)
  Sender: FDA-Public Use
  Company Number: IN-SA-2014SA114906

PATIENT
  Age: 30 Year
  Sex: Female

DRUGS (17)
  1. CLARITHROMYCIN. [Interacting]
     Active Substance: CLARITHROMYCIN
     Indication: TUBERCULOSIS
     Route: 065
  2. STREPTOMYCIN [Interacting]
     Active Substance: STREPTOMYCIN\STREPTOMYCIN SULFATE
     Indication: TUBERCULOSIS
     Route: 065
  3. ETHAMBUTOL [Interacting]
     Active Substance: ETHAMBUTOL HYDROCHLORIDE
     Indication: TUBERCULOSIS
     Route: 065
  4. ISONIAZID. [Interacting]
     Active Substance: ISONIAZID
     Indication: TUBERCULOSIS
     Route: 065
  5. ETHAMBUTOL [Interacting]
     Active Substance: ETHAMBUTOL HYDROCHLORIDE
     Indication: TUBERCULOSIS
     Dosage: 2+4 (6 MONTHS)
     Route: 065
  6. OFLOXACIN. [Suspect]
     Active Substance: OFLOXACIN
     Indication: TUBERCULOSIS
     Route: 065
  7. OFLOXACIN. [Interacting]
     Active Substance: OFLOXACIN
     Indication: TUBERCULOSIS
     Route: 065
  8. OFLOXACIN. [Interacting]
     Active Substance: OFLOXACIN
     Indication: TUBERCULOSIS
     Route: 065
  9. ETHAMBUTOL [Interacting]
     Active Substance: ETHAMBUTOL HYDROCHLORIDE
     Indication: TUBERCULOSIS
     Route: 065
  10. CYCLOSERINE. [Interacting]
     Active Substance: CYCLOSERINE
     Indication: TUBERCULOSIS
     Route: 065
  11. ISONIAZID. [Interacting]
     Active Substance: ISONIAZID
     Indication: TUBERCULOSIS
     Dosage: 2+4 (6 MONTHS)
     Route: 065
  12. ISONIAZID. [Interacting]
     Active Substance: ISONIAZID
     Indication: TUBERCULOSIS
     Route: 065
  13. RIFAMPICIN [Interacting]
     Active Substance: RIFAMPIN
     Indication: TUBERCULOSIS
     Dosage: 2+4 (6 MONTHS)
     Route: 065
  14. RIFAMPICIN [Interacting]
     Active Substance: RIFAMPIN
     Indication: TUBERCULOSIS
     Route: 065
  15. PYRAZINAMIDE. [Interacting]
     Active Substance: PYRAZINAMIDE
     Indication: TUBERCULOSIS
     Dosage: 2+4 (6 MONTHS)
     Route: 065
  16. RIFAMPICIN [Interacting]
     Active Substance: RIFAMPIN
     Indication: TUBERCULOSIS
     Route: 065
  17. PYRAZINAMIDE. [Interacting]
     Active Substance: PYRAZINAMIDE
     Indication: TUBERCULOSIS
     Route: 065

REACTIONS (9)
  - Treatment noncompliance [Unknown]
  - Arthropathy [Recovering/Resolving]
  - Tenderness [Recovering/Resolving]
  - Arthralgia [Recovered/Resolved]
  - Tendonitis [Not Recovered/Not Resolved]
  - Bedridden [Unknown]
  - Drug interaction [Unknown]
  - Joint swelling [Recovered/Resolved]
  - Arthritis [Recovering/Resolving]
